FAERS Safety Report 7503471-7 (Version None)
Quarter: 2011Q2

REPORT INFORMATION
  Report Type: 
  Country: None (occurrence: None)
  Receive Date: 20110525
  Receipt Date: 20110516
  Transmission Date: 20111010
  Serious: Yes (Hospitalization, Congenital Anomaly, Other)
  Sender: FDA-Public Use
  Company Number: US-PFIZER INC-2011105540

PATIENT
  Sex: Male
  Weight: 3 kg

DRUGS (1)
  1. ZOLOFT [Suspect]
     Dosage: UNK
     Route: 064

REACTIONS (31)
  - PNEUMONIA [None]
  - CEREBRAL PALSY [None]
  - BLINDNESS CORTICAL [None]
  - AREFLEXIA [None]
  - HEARING IMPAIRED [None]
  - AQUEDUCTAL STENOSIS [None]
  - TEMPERATURE REGULATION DISORDER [None]
  - FEEDING DISORDER NEONATAL [None]
  - CONGENITAL MULTIPLEX ARTHROGRYPOSIS [None]
  - DYSPHAGIA [None]
  - HYDROCEPHALUS [None]
  - FEMUR FRACTURE [None]
  - BACTERIAL DISEASE CARRIER [None]
  - LIVER DISORDER [None]
  - DRUG EXPOSURE DURING PREGNANCY [None]
  - HYPONATRAEMIA [None]
  - JAUNDICE [None]
  - TALIPES [None]
  - FAILURE TO THRIVE [None]
  - PREMATURE BABY [None]
  - CONSTIPATION [None]
  - PARAPARESIS [None]
  - MYOCLONIC EPILEPSY [None]
  - ANAEMIA [None]
  - GASTROOESOPHAGEAL REFLUX DISEASE [None]
  - VISUAL IMPAIRMENT [None]
  - RESPIRATORY FAILURE [None]
  - MULTIPLE CONGENITAL ABNORMALITIES [None]
  - RETINAL HAEMORRHAGE [None]
  - UPPER RESPIRATORY TRACT INFECTION [None]
  - MUSCLE DISORDER [None]
